FAERS Safety Report 23046588 (Version 1)
Quarter: 2023Q4

REPORT INFORMATION
  Report Type: Report from Study
  Country: ZA (occurrence: None)
  Receive Date: 20231009
  Receipt Date: 20231009
  Transmission Date: 20240109
  Serious: Yes (Death)
  Sender: FDA-Public Use
  Company Number: 2023A227319

PATIENT
  Age: 77 Year
  Sex: Male

DRUGS (5)
  1. BUDESONIDE\FORMOTEROL FUMARATE DIHYDRATE [Suspect]
     Active Substance: BUDESONIDE\FORMOTEROL FUMARATE DIHYDRATE
     Indication: Asthma
     Dosage: 160 UG/INHAL, TWO TIMES A DAY
     Route: 055
  2. ASPIRIN\CLOPIDOGREL BISULFATE [Concomitant]
     Active Substance: ASPIRIN\CLOPIDOGREL BISULFATE
     Indication: Blood disorder
     Route: 048
  3. UROMAX [Concomitant]
     Indication: Prostatomegaly
     Route: 048
  4. FINASTERIDE [Concomitant]
     Active Substance: FINASTERIDE
     Indication: Benign prostatic hyperplasia
     Route: 048
  5. DOPAQUAL [Concomitant]
     Indication: Depression
     Route: 048

REACTIONS (1)
  - Death [Fatal]
